FAERS Safety Report 17241543 (Version 2)
Quarter: 2020Q1

REPORT INFORMATION
  Report Type: Report from Study
  Country: US (occurrence: US)
  Receive Date: 20200107
  Receipt Date: 20200108
  Transmission Date: 20200409
  Serious: Yes (Other)
  Sender: FDA-Public Use
  Company Number: US-ROCHE-2512338

PATIENT
  Age: 6 Year
  Sex: Male

DRUGS (10)
  1. HEMLIBRA [Suspect]
     Active Substance: EMICIZUMAB-KXWH
     Indication: FACTOR VIII DEFICIENCY
     Route: 058
     Dates: start: 20191023
  2. NOVOSEVEN RT [Concomitant]
     Active Substance: COAGULATION FACTOR VIIA RECOMBINANT HUMAN
     Dosage: INJECT 2000 MCG INTO VEIN EVERY 2 HOURS AS NEEDED. COULD GIVE 6 MG (6000 MCG) IV 6 HOURS
     Route: 065
  3. HEMLIBRA [Suspect]
     Active Substance: EMICIZUMAB-KXWH
     Route: 058
     Dates: start: 20190809
  4. LOTRIMIN AF [CLOTRIMAZOLE] [Concomitant]
     Dosage: APPLY TOPICALLY TWO TIMES PER DAY. APPLY TO AFFECTED AREA.
     Route: 065
  5. NOVOSEVEN RT [Concomitant]
     Active Substance: COAGULATION FACTOR VIIA RECOMBINANT HUMAN
     Dosage: INJECT 1 MG INTO VEIN EVERY 2 HOURS AS NEEDED. BREAK THROUGH INJURY OR BLEED.
     Route: 065
  6. KENALOG [Concomitant]
     Active Substance: TRIAMCINOLONE ACETONIDE
     Dosage: APPLY TOPICALLY 2-3 TIMES PER DAY AS NEEDED FOR ITCHING. APPLY SPARINGLY TO AFFECTED AREA.
     Route: 065
  7. HEMLIBRA [Suspect]
     Active Substance: EMICIZUMAB-KXWH
     Route: 058
     Dates: start: 20191114
  8. HEMLIBRA [Suspect]
     Active Substance: EMICIZUMAB-KXWH
     Route: 058
     Dates: start: 20190425
  9. HEMLIBRA [Suspect]
     Active Substance: EMICIZUMAB-KXWH
     Route: 058
     Dates: start: 20190114
  10. NOVOSEVEN [Concomitant]
     Active Substance: COAGULATION FACTOR VIIA RECOMBINANT HUMAN

REACTIONS (2)
  - Ligament sprain [Unknown]
  - Haemarthrosis [Recovered/Resolved]

NARRATIVE: CASE EVENT DATE: 20191024
